FAERS Safety Report 9585815 (Version 1)
Quarter: 2013Q4

REPORT INFORMATION
  Report Type: Spontaneous
  Country: US (occurrence: None)
  Receive Date: 20131002
  Receipt Date: 20131002
  Transmission Date: 20140711
  Serious: Yes (Hospitalization)
  Sender: FDA-Public Use
  Company Number: None

PATIENT
  Age: 55 Year
  Sex: Male

DRUGS (1)
  1. TAFINLAR [Suspect]
     Indication: SKIN CANCER
     Route: 048
     Dates: start: 20130813

REACTIONS (3)
  - Visual impairment [None]
  - Visual impairment [None]
  - Swelling [None]
